FAERS Safety Report 12916983 (Version 2)
Quarter: 2016Q4

REPORT INFORMATION
  Report Type: Spontaneous
  Country: TR (occurrence: TR)
  Receive Date: 20161107
  Receipt Date: 20161201
  Transmission Date: 20170207
  Serious: Yes (Hospitalization, Other)
  Sender: FDA-Public Use
  Company Number: TR-PFIZER INC-2016516580

PATIENT
  Age: 7 Year
  Sex: Female

DRUGS (2)
  1. CLINDAMYCIN PHOSPHATE. [Suspect]
     Active Substance: CLINDAMYCIN PHOSPHATE
     Indication: ANTIBIOTIC THERAPY
     Dosage: 200 MG, 3X/DAY
     Route: 042
  2. CEFTRIAXONE. [Suspect]
     Active Substance: CEFTRIAXONE
     Indication: ANTIBIOTIC THERAPY
     Dosage: 1 G, 1X/DAY
     Route: 042

REACTIONS (7)
  - Myositis [Recovered/Resolved]
  - Drug ineffective [Recovered/Resolved]
  - Abscess [Recovered/Resolved]
  - Mastoiditis [Recovered/Resolved]
  - Otitis media acute [Recovered/Resolved]
  - Tympanic membrane perforation [Recovered/Resolved]
  - Joint effusion [Recovered/Resolved]
